FAERS Safety Report 9694029 (Version 2)
Quarter: 2014Q2

REPORT INFORMATION
  Report Type: Spontaneous
  Country: AU (occurrence: AU)
  Receive Date: 20131118
  Receipt Date: 20140501
  Transmission Date: 20141212
  Serious: Yes (Congenital Anomaly)
  Sender: FDA-Public Use
  Company Number: AU-ABBVIE-13P-008-1158096-00

PATIENT
  Sex: 0

DRUGS (2)
  1. SODIUM VALPROATE [Suspect]
     Indication: MATERNAL EXPOSURE TIMING UNSPECIFIED
     Route: 064
  2. LAMICTAL [Suspect]
     Indication: MATERNAL EXPOSURE TIMING UNSPECIFIED
     Route: 064

REACTIONS (15)
  - Hirsutism [Unknown]
  - Congenital hand malformation [Unknown]
  - Dysmorphism [Unknown]
  - Ear malformation [Unknown]
  - Hernia congenital [Unknown]
  - Multiple congenital abnormalities [Unknown]
  - Foetal exposure during pregnancy [Unknown]
  - Cleft palate [Unknown]
  - Hypertelorism of orbit [Unknown]
  - Congenital nose malformation [Unknown]
  - Low set ears [Unknown]
  - Congenital oral malformation [Unknown]
  - Abnormal palmar/plantar creases [Unknown]
  - Congenital hand malformation [Unknown]
  - Congenital umbilical hernia [Unknown]
